FAERS Safety Report 21551253 (Version 1)
Quarter: 2022Q4

REPORT INFORMATION
  Report Type: Spontaneous
  Country: CN (occurrence: CN)
  Receive Date: 20221103
  Receipt Date: 20221103
  Transmission Date: 20230112
  Serious: Yes (Other)
  Sender: FDA-Public Use
  Company Number: CN-009507513-2211CHN000518

PATIENT
  Sex: Female
  Weight: 52 kg

DRUGS (2)
  1. KEYTRUDA [Suspect]
     Active Substance: PEMBROLIZUMAB
     Indication: Oesophageal carcinoma
     Dosage: 200 MG, ONCE
     Route: 041
     Dates: start: 20220929, end: 20220929
  2. GIMERACIL\OTERACIL\TEGAFUR [Concomitant]
     Active Substance: GIMERACIL\OTERACIL\TEGAFUR
     Indication: Oesophageal carcinoma
     Dosage: 40 MG, BID
     Route: 048
     Dates: start: 20220929, end: 20221012

REACTIONS (2)
  - Cystitis haemorrhagic [Recovering/Resolving]
  - Immune-mediated lung disease [Unknown]

NARRATIVE: CASE EVENT DATE: 20220101
